FAERS Safety Report 18281518 (Version 1)
Quarter: 2020Q3

REPORT INFORMATION
  Report Type: Spontaneous
  Country: IN (occurrence: IN)
  Receive Date: 20200918
  Receipt Date: 20200918
  Transmission Date: 20201103
  Serious: Yes (Other)
  Sender: FDA-Public Use
  Company Number: NVSC2020IN248415

PATIENT
  Sex: Female

DRUGS (3)
  1. KRYXANA [Suspect]
     Active Substance: RIBOCICLIB
     Indication: BREAST CANCER METASTATIC
     Dosage: UNK
     Route: 048
  2. ZOLEDRONIC ACID [Suspect]
     Active Substance: ZOLEDRONIC ACID
     Indication: PRODUCT USED FOR UNKNOWN INDICATION
     Dosage: 4 MG, 100 ML NS OVER 30 MINUTES
     Route: 042
  3. PALBOCICLIB [Suspect]
     Active Substance: PALBOCICLIB
     Indication: BREAST CANCER METASTATIC
     Dosage: 75 MG, QD (COMPLETED FIRST CYCLE ON 03 JUN 2020)
     Route: 048
     Dates: start: 20200512

REACTIONS (4)
  - Ascites [Recovered/Resolved]
  - Therapy partial responder [Unknown]
  - Malignant neoplasm progression [Unknown]
  - Breast cancer metastatic [Unknown]
